FAERS Safety Report 6209909-X (Version None)
Quarter: 2009Q2

REPORT INFORMATION
  Report Type: 
  Country: None (occurrence: None)
  Receive Date: 20090601
  Receipt Date: 20090518
  Transmission Date: 20091009
  Serious: Yes (Hospitalization)
  Sender: FDA-Public Use
  Company Number: FR-PFIZER INC-2009214195

PATIENT
  Age: 63 Year

DRUGS (8)
  1. DALACINE [Suspect]
     Indication: SURGERY
     Dosage: UNK
     Route: 042
     Dates: start: 20080821, end: 20080821
  2. BRISTOPEN [Suspect]
     Indication: SURGERY
     Dosage: UNK
     Route: 042
     Dates: start: 20080821, end: 20080821
  3. SUFENTA PRESERVATIVE FREE [Suspect]
     Indication: SURGERY
     Dosage: UNK
     Route: 042
     Dates: start: 20080821, end: 20080821
  4. HYPNOVEL [Suspect]
     Indication: SURGERY
     Dosage: UNK
     Route: 042
     Dates: start: 20080821, end: 20080821
  5. DIPRIVAN [Suspect]
     Indication: SURGERY
     Dosage: UNK
     Route: 042
     Dates: start: 20080821, end: 20080821
  6. HEXOMEDINE [Suspect]
     Indication: SURGERY
     Dosage: UNK
     Route: 061
     Dates: start: 20080821, end: 20080821
  7. GENTALLINE [Concomitant]
     Indication: SURGERY
     Dosage: UNK
     Route: 042
  8. ALL OTHER THERAPEUTIC PRODUCTS [Concomitant]
     Indication: SURGERY
     Route: 061

REACTIONS (2)
  - ECZEMA [None]
  - RASH MACULO-PAPULAR [None]
